FAERS Safety Report 5885145-1 (Version None)
Quarter: 2008Q3

REPORT INFORMATION
  Report Type: 
  Country: None (occurrence: None)
  Receive Date: 20080915
  Receipt Date: 20080915
  Transmission Date: 20090109
  Serious: Yes (Other)
  Sender: FDA-Public Use
  Company Number: None

PATIENT
  Age: 25 Year
  Sex: Female
  Weight: 98.8842 kg

DRUGS (1)
  1. OCELLA 28-DAYS BARR LABS [Suspect]
     Indication: POLYCYSTIC OVARIES
     Dosage: 28-DAYS  1 A DAY PO
     Route: 048
     Dates: start: 20080801

REACTIONS (8)
  - ADNEXA UTERI PAIN [None]
  - HOT FLUSH [None]
  - MAJOR DEPRESSION [None]
  - MIGRAINE [None]
  - NAUSEA [None]
  - OVARIAN CYST [None]
  - OVARIAN CYST RUPTURED [None]
  - PHARMACEUTICAL PRODUCT COMPLAINT [None]
